FAERS Safety Report 12765331 (Version 1)
Quarter: 2016Q3

REPORT INFORMATION
  Report Type: Spontaneous
  Country: US (occurrence: US)
  Receive Date: 20160919
  Receipt Date: 20160919
  Transmission Date: 20161109
  Serious: Yes (Life-Threatening, Hospitalization)
  Sender: FDA-Public Use
  Company Number: None

PATIENT
  Age: 69 Year
  Sex: Female
  Weight: 97.52 kg

DRUGS (12)
  1. XOLAIR [Suspect]
     Active Substance: OMALIZUMAB
     Indication: RASH
     Dates: start: 20151125, end: 20160825
  2. LEVOCETIRIZINE (XOLAIR) [Concomitant]
  3. ZOLPIDEM [Concomitant]
     Active Substance: ZOLPIDEM\ZOLPIDEM TARTRATE
  4. VITAMIN B12 [Concomitant]
     Active Substance: CYANOCOBALAMIN
  5. XOLAIR [Suspect]
     Active Substance: OMALIZUMAB
     Indication: URTICARIA
     Dates: start: 20151125, end: 20160825
  6. RANITIDINE. [Concomitant]
     Active Substance: RANITIDINE
  7. FISH OIL [Concomitant]
     Active Substance: FISH OIL
  8. FIBER [Concomitant]
     Active Substance: PSYLLIUM HUSK
  9. LOSARTAN. [Concomitant]
     Active Substance: LOSARTAN
  10. MONTELUKAST [Concomitant]
     Active Substance: MONTELUKAST SODIUM
  11. ATORVASTATIN [Concomitant]
     Active Substance: ATORVASTATIN
  12. VITAMIN D [Concomitant]
     Active Substance: CHOLECALCIFEROL

REACTIONS (1)
  - Neuroendocrine carcinoma of the skin [None]

NARRATIVE: CASE EVENT DATE: 20160726
